FAERS Safety Report 13427621 (Version 1)
Quarter: 2017Q2

REPORT INFORMATION
  Report Type: Spontaneous
  Country: US (occurrence: US)
  Receive Date: 20170411
  Receipt Date: 20170411
  Transmission Date: 20170830
  Serious: Yes (Other)
  Sender: FDA-Public Use
  Company Number: US-TEVA-758542USA

PATIENT
  Sex: Female

DRUGS (6)
  1. COPAXONE [Suspect]
     Active Substance: GLATIRAMER ACETATE
     Dosage: UNKNOWN FORM STRENGTH
  2. GILENYA [Suspect]
     Active Substance: FINGOLIMOD HYDROCHLORIDE
     Route: 065
  3. TYSABRI [Suspect]
     Active Substance: NATALIZUMAB
     Route: 065
  4. REBIF [Suspect]
     Active Substance: INTERFERON BETA-1A
     Route: 065
  5. LEMTRADA [Suspect]
     Active Substance: ALEMTUZUMAB
     Route: 042
     Dates: start: 201504
  6. MOVECTRO [Suspect]
     Active Substance: CLADRIBINE
     Route: 065

REACTIONS (5)
  - Multiple sclerosis relapse [Unknown]
  - Dizziness [Unknown]
  - Fatigue [Unknown]
  - Adverse event [Unknown]
  - Headache [Unknown]
